FAERS Safety Report 9033261 (Version 2)
Quarter: 2013Q1

REPORT INFORMATION
  Report Type: Spontaneous
  Country: US (occurrence: US)
  Receive Date: 20130128
  Receipt Date: 20130204
  Transmission Date: 20140127
  Serious: Yes (Other)
  Sender: FDA-Public Use
  Company Number: US-PFIZER INC-2013028841

PATIENT
  Age: 82 Year
  Sex: Male
  Weight: 67.6 kg

DRUGS (10)
  1. CELEBREX [Suspect]
     Indication: ARTHRITIS
     Dosage: UNK
  2. CELEBREX [Suspect]
     Indication: ARTHROPATHY
  3. TIKOSYN [Suspect]
     Dosage: 250 MG
  4. AMIODARONE HCL [Suspect]
     Indication: ATRIAL FIBRILLATION
     Dosage: UNK
     Dates: start: 20110306, end: 20120329
  5. ASPIRIN [Concomitant]
     Indication: ANTICOAGULANT THERAPY
     Dosage: 81 MG, DAILY
  6. PRADAXA [Concomitant]
     Indication: ANTICOAGULANT THERAPY
     Dosage: 150 MG, 2X/DAY
  7. KLOR-CON [Concomitant]
     Indication: BLOOD POTASSIUM ABNORMAL
     Dosage: 10 MG, 2X/DAY
  8. LASIX [Concomitant]
     Indication: DIURETIC THERAPY
     Dosage: 20 MG, 3X/DAY
  9. LOSARTAN [Concomitant]
     Indication: HYPERTENSION
     Dosage: 25 MG, DAILY
  10. PRAVASTATIN [Concomitant]
     Indication: BLOOD CHOLESTEROL ABNORMAL
     Dosage: 80 MG

REACTIONS (7)
  - Pulmonary fibrosis [Unknown]
  - Cardiac fibrillation [Unknown]
  - Drug ineffective [Unknown]
  - Tremor [Recovering/Resolving]
  - Balance disorder [Recovered/Resolved]
  - Feeling abnormal [Unknown]
  - Mental disorder [Unknown]
